FAERS Safety Report 12497337 (Version 1)
Quarter: 2016Q2

REPORT INFORMATION
  Report Type: Report from Study
  Country: DE (occurrence: DE)
  Receive Date: 20160624
  Receipt Date: 20160624
  Transmission Date: 20160815
  Serious: Yes (Hospitalization)
  Sender: FDA-Public Use
  Company Number: DE-ASTRAZENECA-2016SE42875

PATIENT
  Age: 71 Year
  Sex: Male

DRUGS (2)
  1. TICAGRELOR [Suspect]
     Active Substance: TICAGRELOR
     Indication: ACUTE CORONARY SYNDROME
     Route: 048
     Dates: start: 20150228
  2. ASPIRIN. [Suspect]
     Active Substance: ASPIRIN
     Indication: ACUTE CORONARY SYNDROME
     Dosage: (NON-AZ PRODUCT) MAINTENANCE THERAPY
     Route: 048
     Dates: end: 20150329

REACTIONS (2)
  - Lower gastrointestinal haemorrhage [Not Recovered/Not Resolved]
  - Rectal cancer [Recovered/Resolved]

NARRATIVE: CASE EVENT DATE: 20150316
